FAERS Safety Report 9413654 (Version 1)
Quarter: 2013Q3

REPORT INFORMATION
  Report Type: Spontaneous
  Country: BA (occurrence: BA)
  Receive Date: 20130722
  Receipt Date: 20130722
  Transmission Date: 20140515
  Serious: Yes (Other)
  Sender: FDA-Public Use
  Company Number: BA-RB-056154-13

PATIENT
  Age: 0 None
  Sex: Female
  Weight: 1.7 kg

DRUGS (4)
  1. SUBOXONE [Suspect]
     Indication: DRUG WITHDRAWAL MAINTENANCE THERAPY
     Route: 064
     Dates: start: 20121215, end: 20130627
  2. KARBAMAZEPIN [Suspect]
     Indication: AGGRESSION
     Route: 064
     Dates: start: 20121215, end: 20130627
  3. PHOSPHOLIPID [Suspect]
     Indication: HEPATITIS C
     Route: 064
     Dates: start: 20121215, end: 20130627
  4. NICOTINE [Suspect]
     Indication: PRODUCT USED FOR UNKNOWN INDICATION
     Dosage: DOSING DETAILS UNKNOWN
     Route: 064

REACTIONS (3)
  - Foetal exposure during pregnancy [Recovered/Resolved]
  - Premature baby [Recovered/Resolved]
  - Low birth weight baby [Recovering/Resolving]
